FAERS Safety Report 7970958-2 (Version None)
Quarter: 2011Q4

REPORT INFORMATION
  Report Type: 
  Country: None (occurrence: None)
  Receive Date: 20111212
  Receipt Date: 20111205
  Transmission Date: 20120403
  Serious: Yes (Life-Threatening, Hospitalization, Other)
  Sender: FDA-Public Use
  Company Number: JP-BRISTOL-MYERS SQUIBB COMPANY-16231631

PATIENT
  Age: 26 Year
  Sex: Female
  Weight: 60 kg

DRUGS (6)
  1. ABILIFY [Suspect]
     Indication: SCHIZOPHRENIA
     Dosage: 31MAY-9JUN=10D,10JUN-31OCT=144D,24MG1NOV-3NOV=3D,18MG4NOV-10NOV=7D,12MG11NOV-27NOV=17D
     Route: 048
     Dates: start: 20110531, end: 20110609
  2. BLINDED: PLACEBO [Suspect]
     Indication: SCHIZOPHRENIA
     Dates: start: 20110824, end: 20111018
  3. ARIPIPRAZOLE [Suspect]
     Indication: SCHIZOPHRENIA
     Route: 030
     Dates: start: 20110824, end: 20111018
  4. AKINETON [Concomitant]
     Dosage: TAB
     Dates: start: 20111107
  5. RISPERIDONE [Concomitant]
     Dosage: TAB,ALSO TAKEN RESPERIDONE ORAL SOLN 0.1% 25MG AS NEEDED 7NOV11-ONG
     Dates: start: 20111104
  6. ABILIFY [Suspect]
     Route: 048
     Dates: start: 20111101, end: 20111127

REACTIONS (13)
  - SPLENIC INJURY [None]
  - PNEUMOTHORAX TRAUMATIC [None]
  - PELVIC FRACTURE [None]
  - TRAUMATIC FRACTURE [None]
  - CONDITION AGGRAVATED [None]
  - SCHIZOPHRENIA [None]
  - WEIGHT DECREASED [None]
  - REFUSAL OF TREATMENT BY PATIENT [None]
  - SUICIDE ATTEMPT [None]
  - PRURITUS [None]
  - DISORIENTATION [None]
  - HALLUCINATIONS, MIXED [None]
  - RESTLESSNESS [None]
